FAERS Safety Report 6423666-3 (Version None)
Quarter: 2009Q4

REPORT INFORMATION
  Report Type: 
  Country: None (occurrence: None)
  Receive Date: 20091102
  Receipt Date: 20091023
  Transmission Date: 20100525
  Serious: Yes (Hospitalization)
  Sender: FDA-Public Use
  Company Number: JP-MERCK-0910USA03778

PATIENT
  Age: 69 Year
  Sex: Male

DRUGS (6)
  1. PEPCID RPD [Suspect]
     Indication: GASTRITIS
     Route: 048
     Dates: start: 20090929, end: 20091021
  2. ISCOTIN [Suspect]
     Route: 048
     Dates: start: 20090917, end: 20091020
  3. RIFADIN [Suspect]
     Route: 048
     Dates: start: 20090917, end: 20091020
  4. ETHAMBUTOL HYDROCHLORIDE [Suspect]
     Route: 048
     Dates: start: 20090917, end: 20091020
  5. PYRAZINAMIDE [Suspect]
     Route: 048
     Dates: start: 20090917, end: 20091020
  6. OLMETEC [Suspect]
     Route: 048
     Dates: start: 20090917

REACTIONS (3)
  - DRUG TOXICITY [None]
  - PYREXIA [None]
  - RASH GENERALISED [None]
